FAERS Safety Report 7356287-9 (Version None)
Quarter: 2011Q1

REPORT INFORMATION
  Report Type: 
  Country: None (occurrence: None)
  Receive Date: 20110308
  Receipt Date: 20110223
  Transmission Date: 20110831
  Serious: Yes (Other)
  Sender: FDA-Public Use
  Company Number: 1000019127

PATIENT
  Age: 35 Year
  Sex: Female
  Weight: 93 kg

DRUGS (5)
  1. AMLODIPINE [Concomitant]
  2. LEXAPRO [Suspect]
     Indication: ANXIETY
     Dosage: 10 MG (10 MG,1 IN 1 D),ORAL
     Route: 048
     Dates: start: 20110216, end: 20110220
  3. ALPRAZOLAM (ALPRAZOLAM) (TABLETS) (ALPRAZOLAM) [Concomitant]
  4. ATENOLOL [Concomitant]
  5. HYDROCHLOROTHIAZIDE TAB [Concomitant]

REACTIONS (12)
  - HEADACHE [None]
  - TACHYCARDIA [None]
  - VAGINAL HAEMORRHAGE [None]
  - ABDOMINAL PAIN UPPER [None]
  - HYPERHIDROSIS [None]
  - TINNITUS [None]
  - CHOKING SENSATION [None]
  - TREMOR [None]
  - DEPRESSION [None]
  - MALAISE [None]
  - SKIN BURNING SENSATION [None]
  - INSOMNIA [None]
